FAERS Safety Report 6274100-8 (Version None)
Quarter: 2009Q3

REPORT INFORMATION
  Report Type: 
  Country: None (occurrence: None)
  Receive Date: 20090720
  Receipt Date: 20090714
  Transmission Date: 20100115
  Serious: Yes (Life-Threatening, Other)
  Sender: FDA-Public Use
  Company Number: PHHY2009GB29457

PATIENT
  Age: 54 Year
  Sex: Male

DRUGS (7)
  1. LAMISIL [Suspect]
     Indication: FUNGAL INFECTION
     Dosage: UNK
     Route: 048
     Dates: start: 20070213, end: 20080930
  2. HUMIRA [Suspect]
     Indication: PSORIATIC ARTHROPATHY
     Dosage: 40MG ONCE PER TWO WEEKS
     Route: 048
     Dates: start: 20070213, end: 20080918
  3. ACETAMINOPHEN W/ CODEINE [Suspect]
     Indication: ANALGESIA
     Route: 048
  4. METFORMIN HCL [Suspect]
     Indication: DIABETES MELLITUS
     Route: 048
  5. SILDENAFIL CITRATE [Concomitant]
     Indication: ERECTILE DYSFUNCTION
     Dosage: 25 MG, UNK
     Route: 048
  6. SIMVASTATIN [Concomitant]
     Indication: BLOOD CHOLESTEROL INCREASED
  7. ASPIRIN [Concomitant]

REACTIONS (13)
  - ALANINE AMINOTRANSFERASE INCREASED [None]
  - ASPARTATE AMINOTRANSFERASE INCREASED [None]
  - BLOOD ALBUMIN INCREASED [None]
  - BLOOD BILIRUBIN INCREASED [None]
  - BLOOD CALCIUM DECREASED [None]
  - BLOOD CREATININE INCREASED [None]
  - GAMMA-GLUTAMYLTRANSFERASE INCREASED [None]
  - HODGKIN'S DISEASE [None]
  - LYMPHADENOPATHY [None]
  - PROTEIN TOTAL INCREASED [None]
  - PYREXIA [None]
  - TOOTH ABSCESS [None]
  - WEIGHT INCREASED [None]
